FAERS Safety Report 12156589 (Version 2)
Quarter: 2016Q1

REPORT INFORMATION
  Report Type: Spontaneous
  Country: GB (occurrence: GB)
  Receive Date: 20160307
  Receipt Date: 20160311
  Transmission Date: 20160526
  Serious: No
  Sender: FDA-Public Use
  Company Number: GB-009507513-1603GBR003311

PATIENT
  Sex: Female

DRUGS (4)
  1. HERCEPTIN [Suspect]
     Active Substance: TRASTUZUMAB
  2. EMEND [Suspect]
     Active Substance: APREPITANT
     Dosage: CYCLE 7
     Route: 048
  3. PERTUZUMAB [Suspect]
     Active Substance: PERTUZUMAB
  4. NEULASTA [Suspect]
     Active Substance: PEGFILGRASTIM

REACTIONS (4)
  - Fatigue [Unknown]
  - Rash [Unknown]
  - Tumour pain [Unknown]
  - Neuropathy peripheral [Unknown]
